FAERS Safety Report 16200590 (Version 1)
Quarter: 2019Q2

REPORT INFORMATION
  Report Type: Spontaneous
  Country: DE (occurrence: DE)
  Receive Date: 20190416
  Receipt Date: 20190416
  Transmission Date: 20190711
  Serious: Yes (Other)
  Sender: FDA-Public Use
  Company Number: DE-ESPERO PHARMACEUTICALS-ESP201904-000014

PATIENT
  Age: 84 Year
  Sex: Female
  Weight: 59.25 kg

DRUGS (24)
  1. NIFEDIPIN AL [Suspect]
     Active Substance: NIFEDIPINE
     Dates: start: 201609, end: 2016
  2. MIRTAZAPIN HEU NET [Suspect]
     Active Substance: MIRTAZAPINE
     Dates: start: 201210, end: 2013
  3. LENDORMIN [Suspect]
     Active Substance: BROTIZOLAM
     Dates: start: 201211, end: 2017
  4. BISOHEXAL [Suspect]
     Active Substance: BISOPROLOL FUMARATE
     Dates: start: 201203, end: 2018
  5. IBUFLAM LICHTENSTEIN [Suspect]
     Active Substance: IBUPROFEN
     Dates: start: 201704, end: 2017
  6. CLINDAMYCIN RATIOPHARM [Suspect]
     Active Substance: CLINDAMYCIN PHOSPHATE
     Dates: start: 201704, end: 2017
  7. NOVAMINSULFON LICHTENSTEIN [Suspect]
     Active Substance: METAMIZOLE SODIUM
     Dates: start: 201610, end: 2016
  8. DIOVAN [Suspect]
     Active Substance: VALSARTAN
     Indication: HYPERTENSION
     Dates: start: 201810
  9. BISOPROLOL RATIOPHARM [Suspect]
     Active Substance: BISOPROLOL
     Dates: start: 201206, end: 2013
  10. NIFEDIPIN AL [Suspect]
     Active Substance: NIFEDIPINE
     Dates: start: 201604, end: 2016
  11. BELOC ZOK MITE [Suspect]
     Active Substance: METOPROLOL SUCCINATE
     Dates: start: 201504, end: 2015
  12. BISOHEXAL [Suspect]
     Active Substance: BISOPROLOL FUMARATE
     Dates: start: 201505, end: 2016
  13. VALSARTAN HEXAL [Suspect]
     Active Substance: VALSARTAN
     Dates: start: 201209, end: 2016
  14. VALSACOR [Suspect]
     Active Substance: VALSARTAN
     Indication: HYPERTENSION
     Dates: start: 201808
  15. NIFEHEXAL [Suspect]
     Active Substance: NIFEDIPINE
     Dates: start: 201203, end: 2012
  16. NITROGLYCERIN. [Suspect]
     Active Substance: NITROGLYCERIN
     Route: 060
     Dates: start: 201503, end: 2015
  17. RAMIPRIL HEXAL PLUS AMLODIPIN [Suspect]
     Active Substance: AMLODIPINE\RAMIPRIL
     Dates: start: 201606, end: 2016
  18. NITROLINGUAL [Suspect]
     Active Substance: NITROGLYCERIN
     Route: 060
     Dates: start: 201203, end: 2017
  19. IBUPROFEN AL [Suspect]
     Active Substance: IBUPROFEN
     Dates: start: 201211, end: 2012
  20. VALSARTAN HEXAL [Suspect]
     Active Substance: VALSARTAN
     Indication: HYPERTENSION
     Dates: start: 201610, end: 2018
  21. AMLODIPIN STADA [AMLODIPINE MESILATE] [Suspect]
     Active Substance: AMLODIPINE MESYLATE
     Dates: start: 201203, end: 2012
  22. VALSARTAN DURA [Suspect]
     Active Substance: VALSARTAN
     Indication: HYPERTENSION
     Dates: start: 201807, end: 2018
  23. DIOVAN [Suspect]
     Active Substance: VALSARTAN
     Indication: HYPERTENSION
     Dates: start: 201202, end: 2014
  24. BISOHEXAL [Suspect]
     Active Substance: BISOPROLOL FUMARATE
     Dates: start: 201203, end: 2012

REACTIONS (4)
  - Normochromic anaemia [Unknown]
  - Chronic kidney disease [Unknown]
  - Hypertension [Unknown]
  - Carotid artery disease [Unknown]

NARRATIVE: CASE EVENT DATE: 2018
